FAERS Safety Report 7922817-9 (Version None)
Quarter: 2011Q4

REPORT INFORMATION
  Report Type: 
  Country: None (occurrence: None)
  Receive Date: 20111117
  Receipt Date: 20110125
  Transmission Date: 20120403
  Serious: No
  Sender: FDA-Public Use
  Company Number: US-AMGEN-USASP2011004548

PATIENT
  Age: 60 Year
  Sex: Male

DRUGS (4)
  1. CIMZIA [Concomitant]
  2. GOLIMUMAB [Concomitant]
  3. ENBREL [Suspect]
     Indication: RHEUMATOID ARTHRITIS
     Dosage: 25 MG, 2 TIMES/WK
     Dates: start: 20010801
  4. ARAVA [Concomitant]

REACTIONS (4)
  - THERAPEUTIC RESPONSE DECREASED [None]
  - HERPES ZOSTER [None]
  - DRUG INEFFECTIVE [None]
  - RHEUMATOID ARTHRITIS [None]
